FAERS Safety Report 4949356-1 (Version None)
Quarter: 2006Q1

REPORT INFORMATION
  Report Type: 
  Country: None (occurrence: None)
  Receive Date: 20060316
  Receipt Date: 20060307
  Transmission Date: 20060701
  Serious: Yes (Other)
  Sender: FDA-Public Use
  Company Number: 2006004977

PATIENT
  Age: 68 Year
  Sex: Male

DRUGS (14)
  1. TIKOSYN [Suspect]
     Indication: ATRIAL FIBRILLATION
     Dosage: 500 MG (250 MCG, BID INTERVAL: EVERY DAY)
     Dates: start: 20051101
  2. COUMADIN [Suspect]
     Indication: ILL-DEFINED DISORDER
     Dates: start: 20051101
  3. NEOSPORIN [Suspect]
     Indication: EAR INFECTION
  4. ANTIBIOTICS (ANTIBIOTICS) [Suspect]
     Indication: ILL-DEFINED DISORDER
  5. DOXYCYCLINE [Suspect]
     Indication: URINARY TRACT INFECTION
     Dosage: 200 MG (100 MG, BID INTERVAL:  EVERY DAY)
     Dates: start: 20060209, end: 20060215
  6. ATENOLOL [Suspect]
     Indication: ILL-DEFINED DISORDER
     Dosage: 25 MG (25 MG, DAILY INTERVAL:  EVERY DAY)
     Dates: end: 20051101
  7. LAC-HYDRIN (AMMONIUM LACTATE) [Concomitant]
  8. CHONDROITIN/GLUCOSAMINE (CHONDROITIN, GLUCOSAMINE) [Concomitant]
  9. ASPIRIN [Concomitant]
  10. ACETAMINOPHEN [Concomitant]
  11. ACIPHEX [Concomitant]
  12. METROGEL [Concomitant]
  13. EUCERIN CREME (PARAFFIN, LIQUID, PETROLATUM, WOOL FAT) [Concomitant]
  14. DIAZEPAM [Concomitant]

REACTIONS (22)
  - ABDOMINAL PAIN UPPER [None]
  - ANOREXIA [None]
  - ARTHRITIS [None]
  - BACTERIAL INFECTION [None]
  - CARDIAC DISORDER [None]
  - CARDIAC MURMUR [None]
  - CONDITION AGGRAVATED [None]
  - DIZZINESS [None]
  - DYSPHAGIA [None]
  - EAR INFECTION [None]
  - EPISTAXIS [None]
  - EXTRASYSTOLES [None]
  - HAEMOGLOBIN DECREASED [None]
  - HERPES ZOSTER [None]
  - INTERNATIONAL NORMALISED RATIO DECREASED [None]
  - MUSCLE SPASMS [None]
  - PENILE HAEMORRHAGE [None]
  - POST PROCEDURAL HAEMORRHAGE [None]
  - RECTAL HAEMORRHAGE [None]
  - SINUS BRADYCARDIA [None]
  - SYNCOPE [None]
  - URINARY TRACT INFECTION [None]
